FAERS Safety Report 7474963-4 (Version None)
Quarter: 2011Q2

REPORT INFORMATION
  Report Type: 
  Country: None (occurrence: None)
  Receive Date: 20110512
  Receipt Date: 20110502
  Transmission Date: 20111010
  Serious: Yes (Other)
  Sender: FDA-Public Use
  Company Number: US-US-EMD SERONO, INC.-7058859

PATIENT
  Sex: Female

DRUGS (3)
  1. REBIF [Suspect]
     Indication: PRODUCT USED FOR UNKNOWN INDICATION
     Route: 058
     Dates: start: 20040217, end: 20100601
  2. REBIF [Suspect]
     Route: 058
  3. REBIF [Suspect]
     Route: 058
     Dates: start: 20100801, end: 20110214

REACTIONS (4)
  - OPTIC NEURITIS [None]
  - FEELING ABNORMAL [None]
  - THYROID DISORDER [None]
  - INJECTION SITE RASH [None]
